FAERS Safety Report 4349970-0 (Version None)
Quarter: 2004Q2

REPORT INFORMATION
  Report Type: 
  Country: None (occurrence: None)
  Receive Date: 20040428
  Receipt Date: 20040428
  Transmission Date: 20050107
  Serious: Yes (Hospitalization)
  Sender: FDA-Public Use
  Company Number: None

PATIENT
  Age: 48 Year
  Sex: Male
  Weight: 103 kg

DRUGS (21)
  1. SIMVASTATION 40 MG [Suspect]
     Indication: HYPERLIPIDAEMIA
     Dosage: 40 MG PO QHS
     Route: 048
     Dates: start: 20030901, end: 20040113
  2. ACCU-CHECK COMFORT CV (GLUCOSE) TEST STRIP [Concomitant]
  3. ALCHOL PREP PAD [Concomitant]
  4. ASPIRIN [Concomitant]
  5. BENZONATATE [Concomitant]
  6. FOLIC ACID [Concomitant]
  7. FOSINOPRIL NA [Concomitant]
  8. FUROSEMIDE [Concomitant]
  9. INSULIN NOVOLIN 70/30 (NPH/REG) [Concomitant]
  10. .. [Concomitant]
  11. SIMVASTATIN [Concomitant]
  12. INSULIN SYRINGE [Concomitant]
  13. LANCET, TECHLITE [Concomitant]
  14. LOPERAMIDE HCL [Concomitant]
  15. METOLAZONE [Concomitant]
  16. METOPROLOL TARTRATE [Concomitant]
  17. MEXILETINE HCL [Concomitant]
  18. NITROGLYCERIN [Concomitant]
  19. OXYCODONE HCL [Concomitant]
  20. PROMETHAZINE HCL [Concomitant]
  21. RANITIDINE HCL [Concomitant]

REACTIONS (3)
  - BLOOD CREATINE PHOSPHOKINASE INCREASED [None]
  - BLOOD CREATINE PHOSPHOKINASE MB ABNORMAL [None]
  - MYALGIA [None]
